FAERS Safety Report 10600481 (Version 1)
Quarter: 2014Q4

REPORT INFORMATION
  Report Type: Report from Study
  Country: AU (occurrence: AU)
  Receive Date: 20141124
  Receipt Date: 20141124
  Transmission Date: 20150529
  Serious: Yes (Hospitalization)
  Sender: FDA-Public Use
  Company Number: AU-AMGEN-AUSCT2014089359

PATIENT
  Age: 53 Year
  Sex: Female
  Weight: 69.8 kg

DRUGS (6)
  1. MINOCYCLINE [Concomitant]
     Active Substance: MINOCYCLINE\MINOCYCLINE HYDROCHLORIDE
     Indication: RASH
     Dosage: 50 MG, QD
     Route: 048
     Dates: start: 20140506
  2. AROPAX [Concomitant]
     Active Substance: PAROXETINE HYDROCHLORIDE
     Indication: DEPRESSION
     Dosage: 30 MG, QD
     Route: 048
     Dates: start: 1997
  3. PANITUMUMAB [Suspect]
     Active Substance: PANITUMUMAB
     Indication: COLORECTAL CANCER METASTATIC
     Dosage: 414 MG, Q2WK
     Route: 042
     Dates: start: 20140506
  4. IRINOTECAN [Concomitant]
     Active Substance: IRINOTECAN
     Indication: COLORECTAL CANCER METASTATIC
     Dosage: 356 MG, Q2WK
     Route: 042
     Dates: start: 20140506
  5. ROSUVASTATIN [Concomitant]
     Active Substance: ROSUVASTATIN
     Indication: HYPERCHOLESTEROLAEMIA
     Dosage: 5 MG, QD
     Route: 048
     Dates: start: 20140506
  6. EVEROLIMUS [Concomitant]
     Active Substance: EVEROLIMUS
     Indication: COLORECTAL CANCER METASTATIC
     Dosage: 5 MG, QOD
     Route: 048
     Dates: start: 20140506

REACTIONS (1)
  - Dermatitis infected [Not Recovered/Not Resolved]

NARRATIVE: CASE EVENT DATE: 20141118
